FAERS Safety Report 9542797 (Version 1)
Quarter: 2013Q2

REPORT INFORMATION
  Report Type: Spontaneous
  Country: US (occurrence: None)
  Receive Date: 20130524
  Receipt Date: 20130524
  Transmission Date: 20140414
  Serious: Yes (Hospitalization)
  Sender: FDA-Public Use
  Company Number: PHEH2013US000620

PATIENT
  Age: 42 Year
  Sex: Female

DRUGS (6)
  1. GILENYA [Suspect]
     Indication: MULTIPLE SCLEROSIS
     Route: 048
     Dates: start: 20130102
  2. AXERT (ALMOTRIPTAN MALATE) [Concomitant]
  3. CLARITIN (LORATADINE) [Concomitant]
  4. SUDAFED (PSEUDOEPHEDRINE HYDROCHLORIDE) [Concomitant]
  5. TRIAMCINOLONE [Concomitant]
  6. ADVIL (CHLORPHENAMINE MALEATE, IBUPROFEN, PHENYLEPHRINE HYDROCHLORIDE) [Concomitant]

REACTIONS (1)
  - Dyspnoea [None]
